FAERS Safety Report 6521040-2 (Version None)
Quarter: 2009Q4

REPORT INFORMATION
  Report Type: 
  Country: None (occurrence: None)
  Receive Date: 20091229
  Receipt Date: 20091221
  Transmission Date: 20100525
  Serious: Yes (Life-Threatening, Hospitalization, Other)
  Sender: FDA-Public Use
  Company Number: JP-PFIZER INC-2009311161

PATIENT
  Sex: Female
  Weight: 61 kg

DRUGS (6)
  1. AZULFIDINE [Suspect]
     Indication: RHEUMATOID ARTHRITIS
     Dosage: 500 MG, 1X/DAY
     Route: 048
     Dates: start: 20091020, end: 20091203
  2. FUROSEMIDE [Concomitant]
     Dosage: UNK
     Route: 048
  3. DIGOXIN [Concomitant]
     Dosage: UNK
     Route: 048
  4. WARFARIN [Concomitant]
     Dosage: UNK
     Route: 048
  5. SPIRONOLACTONE [Concomitant]
     Dosage: UNK
     Route: 048
  6. PREDONINE [Concomitant]
     Dosage: 2 TABLETS TWICE DAILY
     Route: 048
     Dates: start: 20091020

REACTIONS (4)
  - HAEMOLYTIC ANAEMIA [None]
  - LEUKOPENIA [None]
  - NEUTROPHIL COUNT DECREASED [None]
  - PYREXIA [None]
